APPROVED DRUG PRODUCT: ROPINIROLE HYDROCHLORIDE
Active Ingredient: ROPINIROLE HYDROCHLORIDE
Strength: EQ 5MG BASE
Dosage Form/Route: TABLET;ORAL
Application: A077460 | Product #007
Applicant: COSETTE PHARMACEUTICALS INC
Approved: May 19, 2008 | RLD: No | RS: No | Type: DISCN